FAERS Safety Report 12290340 (Version 2)
Quarter: 2016Q2

REPORT INFORMATION
  Report Type: Spontaneous
  Country: GB (occurrence: GB)
  Receive Date: 20160421
  Receipt Date: 20160622
  Transmission Date: 20160815
  Serious: Yes (Disabling, Other)
  Sender: FDA-Public Use
  Company Number: GB-PFIZER INC-2016214828

PATIENT
  Age: 69 Year
  Sex: Female
  Weight: 115 kg

DRUGS (1)
  1. LIPITOR [Suspect]
     Active Substance: ATORVASTATIN CALCIUM
     Indication: PROPHYLAXIS
     Dosage: 20 MG, DAILY
     Route: 048
     Dates: start: 20160404, end: 20160409

REACTIONS (2)
  - Cerebral infarction [Recovered/Resolved with Sequelae]
  - Haemorrhagic stroke [Unknown]

NARRATIVE: CASE EVENT DATE: 20160408
